FAERS Safety Report 7763520-8 (Version None)
Quarter: 2011Q3

REPORT INFORMATION
  Report Type: 
  Country: None (occurrence: None)
  Receive Date: 20110920
  Receipt Date: 20110914
  Transmission Date: 20111222
  Serious: Yes (Hospitalization)
  Sender: FDA-Public Use
  Company Number: US-B.I. PHARMACEUTICALS,INC./RIDGEFIELD-2011-BP-19119BP

PATIENT
  Age: 86 Year
  Sex: Female
  Weight: 58.1 kg

DRUGS (6)
  1. PREDNISONE [Concomitant]
     Dosage: 7.5 MG
  2. PROTONIX [Concomitant]
     Dosage: 40 MG
  3. PRADAXA [Suspect]
     Indication: ATRIAL FIBRILLATION
     Dosage: 300 MG
     Route: 048
     Dates: end: 20110730
  4. SULFASALAZINE [Concomitant]
     Dosage: 1000 MG
  5. LASIX [Concomitant]
     Dosage: 40 MG
  6. AMIODARONE HCL [Concomitant]
     Dosage: 200 MG

REACTIONS (1)
  - LOWER GASTROINTESTINAL HAEMORRHAGE [None]
